FAERS Safety Report 12597251 (Version 2)
Quarter: 2017Q2

REPORT INFORMATION
  Report Type: Spontaneous
  Country: US (occurrence: US)
  Receive Date: 20160727
  Receipt Date: 20170616
  Transmission Date: 20170830
  Serious: Yes (Hospitalization, Other)
  Sender: FDA-Public Use
  Company Number: US-AUROBINDO-AUR-APL-2016-09810

PATIENT
  Age: 61 Year
  Sex: Female

DRUGS (8)
  1. LORAZEPAM. [Interacting]
     Active Substance: LORAZEPAM
     Indication: ANXIETY
     Dosage: 1 MG, UNK
     Route: 042
  2. LORAZEPAM. [Interacting]
     Active Substance: LORAZEPAM
     Indication: NAUSEA
     Dosage: 1 MG, 2-3 TIMES DAILY
     Route: 048
  3. LORAZEPAM. [Interacting]
     Active Substance: LORAZEPAM
     Indication: PREMEDICATION
  4. FLUOROURACIL. [Concomitant]
     Active Substance: FLUOROURACIL
     Indication: PANCREATIC CARCINOMA
     Dosage: 2000 MG/M2 OVER 46 HOURS
     Route: 042
  5. FOLINIC ACID [Concomitant]
     Active Substance: LEUCOVORIN
     Indication: PANCREATIC CARCINOMA
  6. OLANZAPINE. [Suspect]
     Active Substance: OLANZAPINE
     Indication: PROPHYLAXIS OF NAUSEA AND VOMITING
     Dosage: 10 MG, DAILY
     Route: 048
  7. OLANZAPINE. [Interacting]
     Active Substance: OLANZAPINE
     Indication: NAUSEA
  8. OXALIPLATIN. [Concomitant]
     Active Substance: OXALIPLATIN
     Indication: PANCREATIC CARCINOMA
     Dosage: 60 MG/M2 OVER 2 HOURS
     Route: 042

REACTIONS (7)
  - Respiratory depression [Recovered/Resolved]
  - Hypotension [Recovered/Resolved]
  - Drug interaction [Recovered/Resolved]
  - Off label use [Unknown]
  - Delirium [Recovered/Resolved]
  - Toxicity to various agents [Recovered/Resolved]
  - Unresponsive to stimuli [Recovered/Resolved]
